FAERS Safety Report 21547556 (Version 1)
Quarter: 2022Q4

REPORT INFORMATION
  Report Type: Spontaneous
  Country: US (occurrence: US)
  Receive Date: 20221103
  Receipt Date: 20221103
  Transmission Date: 20230113
  Serious: No
  Sender: FDA-Public Use
  Company Number: US-LUPIN PHARMACEUTICALS INC.-2022-12559

PATIENT
  Age: 17 Year
  Sex: Male

DRUGS (5)
  1. RIFAMPIN [Suspect]
     Active Substance: RIFAMPIN
     Indication: Cat scratch disease
     Dosage: 300 MG, BID
     Route: 048
  2. DOXYCYCLINE [Suspect]
     Active Substance: DOXYCYCLINE
     Indication: Cat scratch disease
     Dosage: 100 MG, BID
     Route: 048
  3. PREDNISONE [Concomitant]
     Active Substance: PREDNISONE
     Indication: Cat scratch disease
     Dosage: 1 MILLIGRAM/KILOGRAM, BID
     Route: 065
  4. PREDNISONE [Concomitant]
     Active Substance: PREDNISONE
     Dosage: 50 MG, QD
     Route: 065
  5. METHYLPREDNISOLONE [Concomitant]
     Active Substance: METHYLPREDNISOLONE
     Indication: Optic neuritis
     Dosage: 1000 MG, EVERY 20 HOURS
     Route: 042

REACTIONS (1)
  - Off label use [Unknown]
